FAERS Safety Report 25644490 (Version 1)
Quarter: 2025Q3

REPORT INFORMATION
  Report Type: Spontaneous
  Country: SY (occurrence: SY)
  Receive Date: 20250805
  Receipt Date: 20250805
  Transmission Date: 20251020
  Serious: Yes (Hospitalization, Other)
  Sender: STRIDES
  Company Number: SY-STRIDES ARCOLAB LIMITED-2025SP009577

PATIENT
  Age: 64 Year
  Sex: Female

DRUGS (2)
  1. PREDNISOLONE [Suspect]
     Active Substance: PREDNISOLONE
     Indication: Giant cell arteritis
     Route: 048
  2. PREDNISOLONE [Suspect]
     Active Substance: PREDNISOLONE
     Route: 048

REACTIONS (2)
  - Secondary amyloidosis [Recovering/Resolving]
  - Therapy partial responder [Unknown]
